FAERS Safety Report 5997575-8 (Version None)
Quarter: 2008Q4

REPORT INFORMATION
  Report Type: 
  Country: None (occurrence: None)
  Receive Date: 20081212
  Receipt Date: 20081113
  Transmission Date: 20090506
  Serious: No
  Sender: FDA-Public Use
  Company Number: US-ABBOTT-08P-163-0488159-00

PATIENT
  Sex: Male
  Weight: 108.96 kg

DRUGS (12)
  1. HUMIRA [Suspect]
     Indication: CROHN'S DISEASE
     Dates: start: 20081112
  2. HUMIRA [Suspect]
  3. DULOXETINE HYDROCHLORIDE [Suspect]
     Indication: DEPRESSION
  4. BALSALAZIDE DISODIUM [Concomitant]
     Indication: CROHN'S DISEASE
  5. MESALAMINE [Concomitant]
     Indication: COLITIS ULCERATIVE
  6. METHYLPREDNISOLONE [Concomitant]
     Indication: CROHN'S DISEASE
  7. MORPHINE SULFATE [Concomitant]
     Indication: BACK PAIN
  8. OXYCODONE HCL [Concomitant]
     Indication: BACK PAIN
     Dosage: 10/325 MG PRN
  9. TOPIRAMATE [Concomitant]
     Indication: NERVE INJURY
  10. FUROSEMIDE [Concomitant]
     Indication: OEDEMA PERIPHERAL
  11. FUROSEMIDE [Concomitant]
     Indication: FLUID RETENTION
  12. OMEPRAZOLE MAGNESIUM [Concomitant]
     Indication: DYSPEPSIA

REACTIONS (1)
  - FLATULENCE [None]
